FAERS Safety Report 4956816-6 (Version None)
Quarter: 2006Q1

REPORT INFORMATION
  Report Type: 
  Country: None (occurrence: None)
  Receive Date: 20060323
  Receipt Date: 20060309
  Transmission Date: 20060701
  Serious: No
  Sender: FDA-Public Use
  Company Number: 2006P1000158

PATIENT
  Sex: Male

DRUGS (3)
  1. NICARDIPINE HYDROCHLORIDE [Suspect]
     Indication: PRE-ECLAMPSIA
     Dosage: IV
     Route: 042
     Dates: start: 20020315, end: 20020322
  2. METHYLDOPA [Concomitant]
  3. KETANSERIN [Concomitant]

REACTIONS (2)
  - INTRA-UTERINE DEATH [None]
  - LABOUR ONSET DELAYED [None]
